FAERS Safety Report 23532178 (Version 1)
Quarter: 2024Q1

REPORT INFORMATION
  Report Type: Spontaneous
  Country: US (occurrence: None)
  Receive Date: 20240215
  Receipt Date: 20240215
  Transmission Date: 20240410
  Serious: No
  Sender: FDA-Public Use
  Company Number: None

PATIENT
  Age: 60 Year
  Sex: Female

DRUGS (1)
  1. SKYRIZI [Suspect]
     Active Substance: RISANKIZUMAB-RZAA
     Indication: Psoriatic arthropathy
     Dosage: FREQUENCY : AS DIRECTED;?INJECT 150 MG  SUBCUTANEOUSLY AT WEEK 0 AND WEEK 4  AS DIRECTED
     Route: 058
     Dates: start: 202306

REACTIONS (1)
  - Sinusitis [None]
